FAERS Safety Report 6406862-0 (Version None)
Quarter: 2009Q4

REPORT INFORMATION
  Report Type: 
  Country: None (occurrence: None)
  Receive Date: 20091020
  Receipt Date: 20091008
  Transmission Date: 20100525
  Serious: Yes (Death, Other)
  Sender: FDA-Public Use
  Company Number: ES-ROCHE-661841

PATIENT
  Age: 23 Year
  Sex: Female

DRUGS (2)
  1. ISOTRETINOIN [Suspect]
     Route: 065
     Dates: start: 20080401
  2. INTERFERON ALFA [Suspect]
     Route: 058
     Dates: start: 20080401

REACTIONS (2)
  - DISEASE PROGRESSION [None]
  - DRUG INEFFECTIVE [None]
